FAERS Safety Report 6415971-1 (Version None)
Quarter: 2009Q4

REPORT INFORMATION
  Report Type: 
  Country: None (occurrence: None)
  Receive Date: 20091027
  Receipt Date: 20091021
  Transmission Date: 20100525
  Serious: Yes (Disabling)
  Sender: FDA-Public Use
  Company Number: D0062911A

PATIENT
  Sex: Female

DRUGS (1)
  1. VIANI MITE [Suspect]
     Dosage: 150MCG UNKNOWN
     Route: 055
     Dates: start: 20090501

REACTIONS (1)
  - TOOTH DISCOLOURATION [None]
